FAERS Safety Report 23868624 (Version 1)
Quarter: 2024Q2

REPORT INFORMATION
  Report Type: Spontaneous
  Country: IN (occurrence: IN)
  Receive Date: 20240517
  Receipt Date: 20240517
  Transmission Date: 20240717
  Serious: Yes (Death, Life-Threatening, Other)
  Sender: FDA-Public Use
  Company Number: IN-GE HEALTHCARE-2024CSU004928

PATIENT
  Age: 70 Year
  Sex: Female
  Weight: 65 kg

DRUGS (1)
  1. VISIPAQUE [Suspect]
     Active Substance: IODIXANOL
     Indication: Angiocardiogram
     Dosage: 40 ML, TOTAL
     Route: 042
     Dates: start: 20240505, end: 20240505

REACTIONS (4)
  - Coronary artery aneurysm [Fatal]
  - Vasculitis [Fatal]
  - Coronary artery occlusion [Fatal]
  - Cardiac arrest [Fatal]

NARRATIVE: CASE EVENT DATE: 20240505
